FAERS Safety Report 8987389 (Version 1)
Quarter: 2012Q4

REPORT INFORMATION
  Report Type: 
  Country: US (occurrence: US)
  Receive Date: 20121226
  Receipt Date: 20121226
  Transmission Date: 20130627
  Serious: Yes (Other)
  Sender: FDA-Public Use
  Company Number: US-ROCHE-1173726

PATIENT
  Sex: Female
  Weight: 98.06 kg

DRUGS (2)
  1. XOLAIR [Suspect]
     Indication: ASTHMA
     Route: 058
     Dates: start: 201203
  2. ADVAIR [Concomitant]

REACTIONS (1)
  - Amenorrhoea [Not Recovered/Not Resolved]
